FAERS Safety Report 5828315-0 (Version None)
Quarter: 2008Q3

REPORT INFORMATION
  Report Type: 
  Country: None (occurrence: None)
  Receive Date: 20080731
  Receipt Date: 20080723
  Transmission Date: 20090109
  Serious: Yes (Other)
  Sender: FDA-Public Use
  Company Number: US-AMGEN-US296557

PATIENT
  Sex: Female

DRUGS (4)
  1. ARANESP [Suspect]
     Indication: DIALYSIS
  2. PREDNISONE [Concomitant]
  3. SANDIMMUNE [Concomitant]
  4. IMURAN [Concomitant]

REACTIONS (2)
  - THERAPEUTIC RESPONSE DECREASED [None]
  - TRANSPLANT FAILURE [None]
